FAERS Safety Report 9643204 (Version 1)
Quarter: 2013Q4

REPORT INFORMATION
  Report Type: Report from Study
  Country: CA (occurrence: CA)
  Receive Date: 20131024
  Receipt Date: 20131024
  Transmission Date: 20140711
  Serious: Yes (Other)
  Sender: FDA-Public Use
  Company Number: CA-JNJFOC-20131011630

PATIENT
  Sex: Female
  Weight: 79 kg

DRUGS (2)
  1. REMICADE [Suspect]
     Indication: COLITIS ULCERATIVE
     Route: 042
     Dates: start: 2009
  2. IMURAN [Concomitant]
     Dosage: ^DIE^
     Route: 065

REACTIONS (2)
  - Breast cyst [Unknown]
  - Surgery [Unknown]
